FAERS Safety Report 10196475 (Version 1)
Quarter: 2014Q2

REPORT INFORMATION
  Report Type: Spontaneous
  Country: US (occurrence: None)
  Receive Date: 20140522
  Receipt Date: 20140522
  Transmission Date: 20141212
  Serious: Yes (Hospitalization)
  Sender: FDA-Public Use
  Company Number: US-000953

PATIENT
  Age: 74 Year
  Sex: Female

DRUGS (17)
  1. GATTEX [Suspect]
     Indication: SHORT-BOWEL SYNDROME
     Route: 058
     Dates: start: 20130822, end: 2014
  2. LEVOTHYROXIN [Concomitant]
  3. OMEPRAZOLE [Concomitant]
  4. LOPERMIDE [Concomitant]
  5. HYDROCHLOROTHIAZIDE [Concomitant]
  6. EVISTA [Concomitant]
  7. VITAMIN D2 [Concomitant]
  8. VITAMIN D3 [Concomitant]
  9. CALCIUM [Concomitant]
  10. SUPER B COMPLEX /01995301/ [Concomitant]
  11. COUMADIN /00014802/ [Concomitant]
  12. ACIDOPHILUS [Concomitant]
  13. MULTIVITAMIN /02358601/ [Concomitant]
  14. VITAMIN B12 NOS [Concomitant]
  15. COPPER [Concomitant]
  16. PROLIA [Concomitant]
  17. SOLUTIONS FOR PARENTERAL NUTRITION [Concomitant]

REACTIONS (6)
  - Malaise [None]
  - Abdominal pain [None]
  - Nausea [None]
  - Vomiting [None]
  - Gastroenteritis viral [None]
  - Aortic thrombosis [None]
